FAERS Safety Report 7867271-0 (Version None)
Quarter: 2011Q4

REPORT INFORMATION
  Report Type: 
  Country: None (occurrence: None)
  Receive Date: 20111028
  Receipt Date: 20111022
  Transmission Date: 20120403
  Serious: Yes (Other)
  Sender: FDA-Public Use
  Company Number: US-JNJFOC-20111010250

PATIENT
  Age: 23 Year
  Sex: Male

DRUGS (2)
  1. BENADRYL [Suspect]
     Route: 048
  2. BENADRYL [Suspect]
     Indication: PRODUCT USED FOR UNKNOWN INDICATION
     Dosage: HUNDREDS PER DAY FOR 3 1/2 YEARS.
     Route: 048

REACTIONS (3)
  - DISTURBANCE IN SOCIAL BEHAVIOUR [None]
  - OVERDOSE [None]
  - DEPENDENCE [None]
